FAERS Safety Report 10042935 (Version 1)
Quarter: 2014Q1

REPORT INFORMATION
  Report Type: Spontaneous
  Country: US (occurrence: US)
  Receive Date: 20140328
  Receipt Date: 20140328
  Transmission Date: 20141002
  Serious: Yes (Other)
  Sender: FDA-Public Use
  Company Number: 2014SP001733

PATIENT
  Age: 72 Year
  Sex: Female

DRUGS (12)
  1. CARBOPLATIN [Suspect]
     Indication: PRODUCT USED FOR UNKNOWN INDICATION
     Route: 042
  2. DOCETAXEL [Suspect]
     Indication: PRODUCT USED FOR UNKNOWN INDICATION
     Route: 042
  3. CEFALEXIN [Suspect]
     Indication: PRODUCT USED FOR UNKNOWN INDICATION
  4. TYKERB [Suspect]
     Indication: PRODUCT USED FOR UNKNOWN INDICATION
     Dates: start: 201308, end: 20131216
  5. TYKERB [Suspect]
     Indication: PRODUCT USED FOR UNKNOWN INDICATION
  6. HERCEPTIN [Suspect]
     Indication: PRODUCT USED FOR UNKNOWN INDICATION
     Route: 042
  7. LIDOCAINE [Concomitant]
     Indication: PRODUCT USED FOR UNKNOWN INDICATION
  8. PRILOCAINE HYDROCHLORIDE [Concomitant]
  9. ONDANSETRON [Concomitant]
     Indication: PRODUCT USED FOR UNKNOWN INDICATION
  10. VALTREX [Concomitant]
     Indication: PRODUCT USED FOR UNKNOWN INDICATION
  11. PROTONIX [Concomitant]
     Indication: PRODUCT USED FOR UNKNOWN INDICATION
  12. PROCHLORPERAZINE [Concomitant]
     Indication: PRODUCT USED FOR UNKNOWN INDICATION

REACTIONS (16)
  - Rash [Recovering/Resolving]
  - Abdominal discomfort [Recovering/Resolving]
  - Frequent bowel movements [Recovering/Resolving]
  - Increased tendency to bruise [Unknown]
  - Asthenia [Unknown]
  - Dizziness [Unknown]
  - Decreased appetite [Unknown]
  - Fatigue [Unknown]
  - Visual impairment [Unknown]
  - Dysphagia [Unknown]
  - Stomatitis [Unknown]
  - Nausea [Unknown]
  - Diarrhoea [Unknown]
  - Feeling abnormal [Unknown]
  - Mucosal inflammation [Unknown]
  - Drug intolerance [Unknown]
